FAERS Safety Report 9846593 (Version 2)
Quarter: 2014Q1

REPORT INFORMATION
  Report Type: Spontaneous
  Country: IT (occurrence: IT)
  Receive Date: 20140127
  Receipt Date: 20140130
  Transmission Date: 20141002
  Serious: Yes (Other)
  Sender: FDA-Public Use
  Company Number: IT-TEVA-456400ISR

PATIENT
  Age: 38 Year
  Sex: Male

DRUGS (1)
  1. LORAZEPAM [Suspect]
     Indication: MOOD ALTERED
     Dosage: 20 MILLIGRAM DAILY; 15 DROPS TWICE DAILY
     Route: 048
     Dates: start: 20131209, end: 20131209

REACTIONS (2)
  - Drug abuse [Recovered/Resolved]
  - Gait disturbance [Recovered/Resolved]
